FAERS Safety Report 5805077-4 (Version None)
Quarter: 2008Q3

REPORT INFORMATION
  Report Type: 
  Country: None (occurrence: None)
  Receive Date: 20080709
  Receipt Date: 20080624
  Transmission Date: 20090109
  Serious: Yes (Death, Hospitalization, Other)
  Sender: FDA-Public Use
  Company Number: NL-GENENTECH-263796

PATIENT
  Sex: Male

DRUGS (2)
  1. AVASTIN [Suspect]
     Indication: RECTAL CANCER
     Dosage: UNK UNK, UNKNOWN
     Route: 042
     Dates: start: 20070301
  2. CHEMOTHERAPY (UNK INGREDIENTS) [Concomitant]
     Indication: RECTAL CANCER
     Dosage: UNK UNK, UNKNOWN
     Route: 065

REACTIONS (3)
  - ABSCESS [None]
  - MULTI-ORGAN FAILURE [None]
  - RECTAL PERFORATION [None]
